FAERS Safety Report 21990403 (Version 1)
Quarter: 2023Q1

REPORT INFORMATION
  Report Type: Spontaneous
  Country: US (occurrence: US)
  Receive Date: 20230214
  Receipt Date: 20230214
  Transmission Date: 20230417
  Serious: Yes (Hospitalization, Other)
  Sender: FDA-Public Use
  Company Number: US-SA-N109873

PATIENT
  Age: 45 Year
  Sex: Female

DRUGS (3)
  1. PRIMAQUINE [Suspect]
     Active Substance: PRIMAQUINE
     Indication: Plasmodium vivax infection
     Dosage: 1260 MG,1X (84 TABLETS)
     Route: 048
     Dates: start: 19970916, end: 19970916
  2. PRIMAQUINE [Suspect]
     Active Substance: PRIMAQUINE
     Dosage: 15 MG, QD
     Route: 048
     Dates: start: 19970917
  3. MEFLOQUINE HYDROCHLORIDE [Concomitant]
     Active Substance: MEFLOQUINE HYDROCHLORIDE
     Indication: Plasmodium vivax infection
     Dosage: 1250 MG
     Dates: start: 19970915, end: 19970915

REACTIONS (8)
  - Acute hepatic failure [Recovered/Resolved]
  - Prescribed overdose [Recovered/Resolved]
  - Abdominal pain [Recovered/Resolved]
  - Nausea [Recovered/Resolved]
  - Chromaturia [Recovered/Resolved]
  - Jaundice [Recovered/Resolved]
  - Malaise [Recovered/Resolved]
  - Hallucination [Unknown]

NARRATIVE: CASE EVENT DATE: 19970916
